FAERS Safety Report 18372970 (Version 2)
Quarter: 2020Q4

REPORT INFORMATION
  Report Type: Spontaneous
  Country: JP (occurrence: JP)
  Receive Date: 20201012
  Receipt Date: 20201029
  Transmission Date: 20210114
  Serious: Yes (Other)
  Sender: FDA-Public Use
  Company Number: JP-PFIZER INC-2020389638

PATIENT
  Age: 74 Year
  Sex: Male

DRUGS (10)
  1. CLENAFIN [Concomitant]
     Active Substance: EFINACONAZOLE
     Dosage: UNK
  2. XELJANZ [Suspect]
     Active Substance: TOFACITINIB CITRATE
     Dosage: 5 MG, 1X/DAY
     Route: 048
     Dates: start: 20171106, end: 20180604
  3. LULICON [Concomitant]
     Active Substance: LULICONAZOLE
     Dosage: UNK
  4. AZULFIDINE EN-TABS [Concomitant]
     Active Substance: SULFASALAZINE
     Dosage: UNK
     Dates: start: 20131003
  5. XELJANZ [Suspect]
     Active Substance: TOFACITINIB CITRATE
     Indication: RHEUMATOID ARTHRITIS
     Dosage: 5 MG, 1X/DAY
     Route: 048
     Dates: start: 20170105, end: 20170208
  6. XELJANZ [Suspect]
     Active Substance: TOFACITINIB CITRATE
     Dosage: 5 MG, 1X/DAY
     Route: 048
     Dates: start: 20170313, end: 20170409
  7. XELJANZ [Suspect]
     Active Substance: TOFACITINIB CITRATE
     Dosage: 5 MG, 2X/DAY
     Route: 048
     Dates: start: 20170410, end: 20171105
  8. URSO [Concomitant]
     Active Substance: URSODIOL
     Dosage: UNK
     Route: 048
  9. CALBLOCK [Concomitant]
     Active Substance: AZELNIDIPINE
     Dosage: UNK
     Route: 048
  10. ALLOPURINOL. [Concomitant]
     Active Substance: ALLOPURINOL
     Dosage: UNK
     Route: 048
     Dates: start: 20170501

REACTIONS (3)
  - Renal impairment [Unknown]
  - Protein urine present [Unknown]
  - Chronic kidney disease [Unknown]

NARRATIVE: CASE EVENT DATE: 20180730
